FAERS Safety Report 25832203 (Version 1)
Quarter: 2025Q3

REPORT INFORMATION
  Report Type: Spontaneous
  Country: US (occurrence: None)
  Receive Date: 20250922
  Receipt Date: 20250922
  Transmission Date: 20251020
  Serious: Yes (Life-Threatening, Other)
  Sender: FDA-CTU
  Company Number: None

PATIENT
  Age: 19 Year
  Sex: Female
  Weight: 47.25 kg

DRUGS (5)
  1. .DELTA.9-TETRAHYDROCANNABINOLIC ACID\HERBALS [Suspect]
     Active Substance: .DELTA.9-TETRAHYDROCANNABINOLIC ACID\HERBALS
     Indication: Anxiety
     Route: 055
     Dates: start: 20250920, end: 20250920
  2. .DELTA.9-TETRAHYDROCANNABINOLIC ACID\HERBALS [Suspect]
     Active Substance: .DELTA.9-TETRAHYDROCANNABINOLIC ACID\HERBALS
     Indication: Insomnia
  3. SERTRALINE [Concomitant]
     Active Substance: SERTRALINE HYDROCHLORIDE
  4. BUPROPION [Concomitant]
     Active Substance: BUPROPION
  5. VYVANSE [Concomitant]
     Active Substance: LISDEXAMFETAMINE DIMESYLATE

REACTIONS (11)
  - Headache [None]
  - Screaming [None]
  - Fear of disease [None]
  - Psychotic disorder [None]
  - Disorganised speech [None]
  - Hallucination [None]
  - Skin burning sensation [None]
  - Feeling abnormal [None]
  - Abnormal dreams [None]
  - Heart rate increased [None]
  - Drug screen positive [None]

NARRATIVE: CASE EVENT DATE: 20250920
